FAERS Safety Report 9550053 (Version 1)
Quarter: 2013Q3

REPORT INFORMATION
  Report Type: Spontaneous
  Country: JP (occurrence: JP)
  Receive Date: 20130924
  Receipt Date: 20130924
  Transmission Date: 20140515
  Serious: Yes (Other)
  Sender: FDA-Public Use
  Company Number: JP-UCBSA-098112

PATIENT
  Sex: 0

DRUGS (1)
  1. XYZAL [Suspect]
     Route: 048

REACTIONS (1)
  - Deafness [Not Recovered/Not Resolved]
